FAERS Safety Report 21952070 (Version 1)
Quarter: 2023Q1

REPORT INFORMATION
  Report Type: Spontaneous
  Country: GB (occurrence: GB)
  Receive Date: 20230203
  Receipt Date: 20230203
  Transmission Date: 20230418
  Serious: Yes (Other)
  Sender: FDA-Public Use
  Company Number: GB-PFIZER INC-2008016951

PATIENT
  Age: 39 Year
  Sex: Male

DRUGS (5)
  1. METHOTREXATE SODIUM [Interacting]
     Active Substance: METHOTREXATE SODIUM
     Indication: Rheumatoid arthritis
     Dosage: WEEKLY
  2. METHOTREXATE SODIUM [Interacting]
     Active Substance: METHOTREXATE SODIUM
     Dosage: WEEKLY
     Dates: start: 20071213
  3. EPILIM [Interacting]
     Active Substance: VALPROATE SODIUM
     Indication: Epilepsy
     Dosage: EVERY DAY
     Route: 048
     Dates: start: 20050421
  4. GABAPENTIN [Concomitant]
     Active Substance: GABAPENTIN
  5. ACETAMINOPHEN [Concomitant]
     Active Substance: ACETAMINOPHEN

REACTIONS (3)
  - Drug interaction [Unknown]
  - Drug ineffective [Unknown]
  - Epilepsy [Unknown]

NARRATIVE: CASE EVENT DATE: 20071213
